FAERS Safety Report 7016847-1 (Version None)
Quarter: 2010Q3

REPORT INFORMATION
  Report Type: 
  Country: None (occurrence: None)
  Receive Date: 20100927
  Receipt Date: 20100917
  Transmission Date: 20110219
  Serious: Yes (Life-Threatening, Hospitalization)
  Sender: FDA-Public Use
  Company Number: DE-NICOBRDEV-2010-11552

PATIENT
  Sex: Male
  Weight: 83 kg

DRUGS (6)
  1. KENTERA (WATSON LABORATORIES) [Suspect]
     Indication: URINARY INCONTINENCE
     Dosage: 1 PATCH 2/WEEK
     Route: 062
     Dates: start: 20100401, end: 20100826
  2. CARBIDOPA AND LEVODOPA [Concomitant]
     Indication: PARKINSON'S DISEASE
     Dosage: 200/50 1 DOSE FORM THREE TIMES DAILY
     Route: 048
  3. PRAMIPEXOLE DIHYDROCHLORIDE [Concomitant]
     Indication: PARKINSON'S DISEASE
     Dosage: 1,05 DAILY
  4. CARBIDOPA AND LEVODOPA [Concomitant]
     Dosage: 1/2SE FORM 2-3 TIMES DAILY
     Route: 048
  5. LANITOP [Concomitant]
     Indication: PRODUCT USED FOR UNKNOWN INDICATION
     Dosage: 0,1 DAILY
     Route: 065
  6. VOTUM                              /01635402/ [Concomitant]
     Indication: PRODUCT USED FOR UNKNOWN INDICATION
     Dosage: 1DAILY
     Route: 065

REACTIONS (4)
  - PYREXIA [None]
  - URINARY TRACT INFECTION [None]
  - URINE COLOUR ABNORMAL [None]
  - UROSEPSIS [None]
